FAERS Safety Report 5347053-4 (Version None)
Quarter: 2007Q2

REPORT INFORMATION
  Report Type: 
  Country: None (occurrence: None)
  Receive Date: 20070604
  Receipt Date: 20070521
  Transmission Date: 20071010
  Serious: Yes (Other)
  Sender: FDA-Public Use
  Company Number: B0472266A

PATIENT
  Age: 36 Year
  Sex: Male

DRUGS (8)
  1. LAMOTRIGINE [Suspect]
     Dosage: SEE DOSAGE TEXT
  2. OXCARBAZEPINE [Suspect]
     Dosage: SEE DOSAGE TEXT
  3. PHENYTOIN [Suspect]
     Indication: CONVULSION PROPHYLAXIS
  4. VENLAFAXIINE HCL [Concomitant]
  5. MIRTAZAPINE [Concomitant]
  6. METOPROLOL SUCCINATE [Concomitant]
  7. PROPRANOLOL HYDROCHLORIDE [Concomitant]
  8. FAMOTIDINE [Concomitant]

REACTIONS (6)
  - APHTHOUS STOMATITIS [None]
  - CEREBRAL ISCHAEMIA [None]
  - DEPRESSION [None]
  - INJURY ASPHYXIATION [None]
  - METABOLIC DISORDER [None]
  - SUICIDE ATTEMPT [None]
